FAERS Safety Report 6220520-7 (Version None)
Quarter: 2009Q2

REPORT INFORMATION
  Report Type: 
  Country: None (occurrence: None)
  Receive Date: 20090610
  Receipt Date: 20090529
  Transmission Date: 20091009
  Serious: Yes (Other)
  Sender: FDA-Public Use
  Company Number: US-PFIZER INC-2009201565

PATIENT
  Sex: Female
  Weight: 71.4 kg

DRUGS (7)
  1. SUTENT [Suspect]
     Indication: VON HIPPEL-LINDAU DISEASE
     Dosage: 50 MG, 1X/DAY, CYCLIC
     Route: 048
     Dates: start: 20081211, end: 20090401
  2. DEPO-PROVERA [Concomitant]
     Indication: CONTRACEPTION
     Dosage: EVERY 3 MONTHS
  3. AMLODIPINE [Concomitant]
     Indication: HYPERTENSION
     Dosage: 5-10 MG, AS NEEDED
  4. LISINOPRIL [Concomitant]
     Indication: HYPERTENSION
     Dosage: 5 MG, AS NEEDED
  5. LEVOTHYROXINE [Concomitant]
     Dosage: 100 UG, UNK
  6. PROCHLORPERAZINE [Concomitant]
     Indication: NAUSEA
     Dosage: 5 MG, AS NEEDED
  7. TUMS [Concomitant]
     Indication: REFLUX OESOPHAGITIS
     Dosage: 1-2 TABS EVERY 4HOURS, AS NEEDED

REACTIONS (3)
  - HYPOTHYROIDISM [None]
  - NECK PAIN [None]
  - THYROIDITIS [None]
